FAERS Safety Report 24295746 (Version 2)
Quarter: 2024Q4

REPORT INFORMATION
  Report Type: Report from Study
  Country: FR (occurrence: FR)
  Receive Date: 20240908
  Receipt Date: 20241203
  Transmission Date: 20250114
  Serious: Yes (Hospitalization)
  Sender: ABBVIE
  Company Number: FR-ABBVIE-5907586

PATIENT
  Age: 27 Year
  Sex: Female
  Weight: 50 kg

DRUGS (7)
  1. UPADACITINIB [Suspect]
     Active Substance: UPADACITINIB
     Indication: Colitis ulcerative
     Route: 048
     Dates: start: 20240322, end: 20240514
  2. UPADACITINIB [Suspect]
     Active Substance: UPADACITINIB
     Indication: Colitis ulcerative
     Route: 048
     Dates: start: 20240515, end: 20240926
  3. UPADACITINIB [Suspect]
     Active Substance: UPADACITINIB
     Indication: Colitis ulcerative
     Route: 048
     Dates: start: 20240927, end: 20241120
  4. EFFACLAR [Concomitant]
     Active Substance: ADAPALENE
     Indication: Acne
     Dosage: TIME INTERVAL: AS NECESSARY: DOSE- UNK APPLICATION
     Route: 061
     Dates: start: 20240514
  5. EPIDUO [Concomitant]
     Active Substance: ADAPALENE\BENZOYL PEROXIDE
     Indication: Acne
     Dosage: TIME INTERVAL: AS NECESSARY: DOSE- UNK APPLICATION
     Route: 061
     Dates: start: 20240514
  6. ONDANSETRON [Concomitant]
     Active Substance: ONDANSETRON
     Indication: Nausea
     Dosage: FREQUENCY: ONCE
     Route: 042
     Dates: start: 20240701, end: 20240701
  7. PANTOPRAZOLE [Concomitant]
     Active Substance: PANTOPRAZOLE
     Indication: Prophylaxis
     Route: 048
     Dates: start: 20240701, end: 20240701

REACTIONS (1)
  - Endometriosis [Not Recovered/Not Resolved]

NARRATIVE: CASE EVENT DATE: 20240701
